FAERS Safety Report 8966642 (Version 1)
Quarter: 2012Q4

REPORT INFORMATION
  Report Type: 
  Country: US (occurrence: US)
  Receive Date: 20121217
  Receipt Date: 20121217
  Transmission Date: 20130627
  Serious: No
  Sender: FDA-Public Use
  Company Number: US-PFIZER INC-2012318303

PATIENT
  Age: 51 Year
  Sex: Female
  Weight: 79.37 kg

DRUGS (5)
  1. PRISTIQ [Suspect]
     Indication: ANXIETY
     Dosage: 50 mg, daily
     Dates: start: 201209
  2. PRISTIQ [Suspect]
     Indication: DEPRESSION
  3. FLUOXETINE HCL [Suspect]
     Indication: ANXIETY
     Dosage: 20 mg, alternate day
  4. FLUOXETINE HCL [Suspect]
     Indication: DEPRESSION
     Dosage: 20 mg daily
  5. CLONAZEPAM [Concomitant]
     Indication: ANXIETY
     Dosage: 1 to 2 mg daily

REACTIONS (1)
  - Malaise [Not Recovered/Not Resolved]
